FAERS Safety Report 20538952 (Version 1)
Quarter: 2022Q1

REPORT INFORMATION
  Report Type: Spontaneous
  Country: OM (occurrence: OM)
  Receive Date: 20220302
  Receipt Date: 20220302
  Transmission Date: 20220423
  Serious: Yes (Life-Threatening, Hospitalization, Other)
  Sender: FDA-Public Use
  Company Number: OM-MLMSERVICE-20220211-3374791-1

PATIENT
  Age: 38 Year
  Sex: Male

DRUGS (5)
  1. CYCLOSPORINE [Suspect]
     Active Substance: CYCLOSPORINE
     Indication: Product used for unknown indication
     Dosage: 300 MG, QD
     Route: 065
     Dates: start: 2017
  2. MYCOPHENOLATE MOFETIL [Suspect]
     Active Substance: MYCOPHENOLATE MOFETIL
     Indication: Immunosuppressant drug therapy
     Dosage: 2000 MG, QD
     Route: 065
     Dates: start: 2017
  3. PREDNISOLONE [Suspect]
     Active Substance: PREDNISOLONE
     Indication: Immunosuppressant drug therapy
     Dosage: 5 MG, QD
     Route: 065
     Dates: start: 2017
  4. INSULIN NOS [Concomitant]
     Active Substance: INSULIN NOS
     Indication: Type 2 diabetes mellitus
     Dosage: 26 IU, QD
     Route: 065
  5. LANTUS [Concomitant]
     Active Substance: INSULIN GLARGINE
     Indication: Type 2 diabetes mellitus
     Dosage: 36 IU, QD
     Route: 065

REACTIONS (6)
  - Status epilepticus [Recovering/Resolving]
  - Encephalopathy [Recovering/Resolving]
  - Upper respiratory tract infection [Recovering/Resolving]
  - Renal impairment [Recovering/Resolving]
  - West Nile viral infection [Recovering/Resolving]
  - Microangiopathy [Recovering/Resolving]

NARRATIVE: CASE EVENT DATE: 20180101
